FAERS Safety Report 9558314 (Version 2)
Quarter: 2013Q4

REPORT INFORMATION
  Report Type: Spontaneous
  Country: IE (occurrence: IE)
  Receive Date: 20130926
  Receipt Date: 20131111
  Transmission Date: 20140711
  Serious: Yes (Other)
  Sender: FDA-Public Use
  Company Number: IE-PFIZER INC-2013275003

PATIENT
  Age: 42 Year
  Sex: Female

DRUGS (5)
  1. PREGABALIN [Suspect]
     Indication: BACK PAIN
     Dosage: 150 MG, 2X/DAY
     Route: 048
     Dates: start: 20110914
  2. PREGABALIN [Suspect]
     Indication: NEURALGIA
  3. OXYCODONE [Suspect]
     Indication: BACK PAIN
     Dosage: 100 MG, 2X/DAY
  4. HYDROMORPHONE [Concomitant]
     Indication: NEURALGIA
     Dosage: 24 MG, 2X/DAY
     Route: 048
     Dates: start: 201109, end: 201109
  5. METHADONE [Concomitant]
     Indication: NEURALGIA
     Dosage: 10 MG, 2X/DAY
     Route: 048
     Dates: start: 201109, end: 20110928

REACTIONS (1)
  - Toxicity to various agents [Unknown]
